FAERS Safety Report 9685563 (Version 1)
Quarter: 2013Q4

REPORT INFORMATION
  Report Type: Spontaneous
  Country: US (occurrence: None)
  Receive Date: 20131112
  Receipt Date: 20131112
  Transmission Date: 20140711
  Serious: No
  Sender: FDA-Public Use
  Company Number: None

PATIENT
  Age: 15 Year
  Sex: Male

DRUGS (1)
  1. BACTRIM [Suspect]
     Dates: start: 20120316, end: 20120326

REACTIONS (3)
  - Drug-induced liver injury [None]
  - Osteomyelitis [None]
  - Hepatitis acute [None]
